FAERS Safety Report 10213918 (Version 1)
Quarter: 2014Q2

REPORT INFORMATION
  Report Type: Spontaneous
  Country: JP (occurrence: JP)
  Receive Date: 20140603
  Receipt Date: 20140603
  Transmission Date: 20141212
  Serious: Yes (Hospitalization)
  Sender: FDA-Public Use
  Company Number: JP-MYLANLABS-2014S1012324

PATIENT
  Age: 4 Year
  Sex: Male

DRUGS (2)
  1. METHOTREXATE [Suspect]
     Indication: B-CELL TYPE ACUTE LEUKAEMIA
     Route: 048
  2. LEUKERIN [Suspect]
     Indication: B-CELL TYPE ACUTE LEUKAEMIA
     Route: 048

REACTIONS (2)
  - Varicella [Recovered/Resolved]
  - Encephalopathy [Recovered/Resolved]
